FAERS Safety Report 17534338 (Version 1)
Quarter: 2020Q1

REPORT INFORMATION
  Report Type: Spontaneous
  Country: CH (occurrence: CH)
  Receive Date: 20200312
  Receipt Date: 20200312
  Transmission Date: 20200409
  Serious: Yes (Disabling)
  Sender: FDA-Public Use
  Company Number: CH-EXELIXIS-CABO-20028005

PATIENT
  Age: 56 Year
  Sex: Female

DRUGS (2)
  1. CABOMETYX [Suspect]
     Active Substance: CABOZANTINIB S-MALATE
     Dosage: 60 MG PER 2 DAYS
  2. CABOMETYX [Suspect]
     Active Substance: CABOZANTINIB S-MALATE
     Indication: HEPATOCELLULAR CARCINOMA
     Dosage: 60 MG
     Dates: start: 201911

REACTIONS (4)
  - Peroneal nerve palsy [Unknown]
  - Aortic thrombosis [Unknown]
  - Off label use [Unknown]
  - Renal artery thrombosis [Unknown]
